FAERS Safety Report 4424719-1 (Version None)
Quarter: 2004Q3

REPORT INFORMATION
  Report Type: 
  Country: None (occurrence: None)
  Receive Date: 20040805
  Receipt Date: 20040723
  Transmission Date: 20050211
  Serious: Yes (Other)
  Sender: FDA-Public Use
  Company Number: HQWYE400523JUL04

PATIENT

DRUGS (1)
  1. CORDAREX (AMIODARONE, INJECTION) [Suspect]
     Dosage: 150 MG , INTRAVENOUS
     Route: 042

REACTIONS (2)
  - APNOEA [None]
  - GROIN PAIN [None]
